FAERS Safety Report 5195790-7 (Version None)
Quarter: 2007Q1

REPORT INFORMATION
  Report Type: 
  Country: None (occurrence: None)
  Receive Date: 20070102
  Receipt Date: 20061220
  Transmission Date: 20070707
  Serious: Yes (Hospitalization, Other)
  Sender: FDA-Public Use
  Company Number: CA-PFIZER INC-2006124331

PATIENT
  Sex: Male
  Weight: 66.5 kg

DRUGS (3)
  1. SU-011,248 [Suspect]
     Indication: RENAL CELL CARCINOMA STAGE UNSPECIFIED
     Route: 048
  2. EPREX [Suspect]
     Route: 058
     Dates: start: 20060809, end: 20060930
  3. MEGACE [Concomitant]
     Route: 048
     Dates: start: 20060809, end: 20060930

REACTIONS (4)
  - GRAND MAL CONVULSION [None]
  - HAEMATOCRIT INCREASED [None]
  - ISCHAEMIA [None]
  - POSTICTAL STATE [None]
